FAERS Safety Report 6868481-1 (Version None)
Quarter: 2010Q3

REPORT INFORMATION
  Report Type: 
  Country: None (occurrence: None)
  Receive Date: 20100722
  Receipt Date: 20100721
  Transmission Date: 20110219
  Serious: Yes (Life-Threatening)
  Sender: FDA-Public Use
  Company Number: GB-VALEANT-2010VX000982

PATIENT
  Age: 68 Year
  Sex: Male

DRUGS (1)
  1. EFUDIX [Suspect]
     Indication: ACTINIC KERATOSIS
     Route: 061
     Dates: start: 19990101, end: 20080101

REACTIONS (4)
  - BLOOD TEST ABNORMAL [None]
  - DIHYDROPYRIMIDINE DEHYDROGENASE DEFICIENCY [None]
  - DRUG TOXICITY [None]
  - GENE MUTATION [None]
